FAERS Safety Report 7598604-0 (Version None)
Quarter: 2011Q3

REPORT INFORMATION
  Report Type: 
  Country: None (occurrence: None)
  Receive Date: 20110710
  Receipt Date: 20110627
  Transmission Date: 20111222
  Serious: Yes (Other)
  Sender: FDA-Public Use
  Company Number: US-AMGEN-USASP2011027809

PATIENT
  Age: 62 Year
  Sex: Male

DRUGS (1)
  1. ENBREL [Suspect]
     Indication: RHEUMATOID ARTHRITIS
     Dosage: 50 MG, QWK
     Dates: start: 20110401

REACTIONS (10)
  - ARTHRALGIA [None]
  - EAR INFECTION [None]
  - VISUAL IMPAIRMENT [None]
  - DYSKINESIA [None]
  - INJECTION SITE DISCOLOURATION [None]
  - HYPOAESTHESIA [None]
  - VISION BLURRED [None]
  - ASTHMA [None]
  - JOINT INSTABILITY [None]
  - INJECTION SITE PAIN [None]
